FAERS Safety Report 4522309-3 (Version None)
Quarter: 2004Q4

REPORT INFORMATION
  Report Type: 
  Country: None (occurrence: None)
  Receive Date: 20041207
  Receipt Date: 20041122
  Transmission Date: 20050328
  Serious: Yes (Hospitalization, Other)
  Sender: FDA-Public Use
  Company Number: 2004-00770

PATIENT
  Age: 65 Year
  Sex: Female
  Weight: 70 kg

DRUGS (1)
  1. VELCADE [Suspect]
     Indication: MULTIPLE MYELOMA
     Dosage: 2.20 MG,UNK, INTRAVENOUS
     Route: 042
     Dates: start: 20041104, end: 20041108

REACTIONS (4)
  - HAEMOGLOBIN S DECREASED [None]
  - IMMUNODEFICIENCY [None]
  - INFECTION [None]
  - PYREXIA [None]
